FAERS Safety Report 8092875-2 (Version None)
Quarter: 2012Q1

REPORT INFORMATION
  Report Type: 
  Country: None (occurrence: None)
  Receive Date: 20120128
  Receipt Date: 20110726
  Transmission Date: 20120608
  Serious: No
  Sender: FDA-Public Use
  Company Number: US-ABBOTT-11P-163-0841764-00

PATIENT
  Sex: Male
  Weight: 73.548 kg

DRUGS (3)
  1. HUMIRA [Suspect]
     Indication: CROHN'S DISEASE
     Route: 058
     Dates: start: 20110425, end: 20110425
  2. HUMIRA [Suspect]
     Route: 058
     Dates: start: 20110524
  3. HUMIRA [Suspect]
     Route: 058
     Dates: start: 20110510, end: 20110510

REACTIONS (2)
  - PANIC ATTACK [None]
  - PYREXIA [None]
